FAERS Safety Report 13739611 (Version 1)
Quarter: 2017Q3

REPORT INFORMATION
  Report Type: Report from Study
  Country: JP (occurrence: JP)
  Receive Date: 20170711
  Receipt Date: 20170711
  Transmission Date: 20171127
  Serious: Yes (Hospitalization)
  Sender: FDA-Public Use
  Company Number: PHHY2009JP19951

PATIENT
  Age: 86 Year
  Sex: Female

DRUGS (5)
  1. PURSENNID [Concomitant]
     Active Substance: SENNOSIDES A AND B
  2. MIKELAN LA 2% [Suspect]
     Active Substance: CARTEOLOL HYDROCHLORIDE
     Indication: NORMAL TENSION GLAUCOMA
     Dosage: 1 DRP, QD BOTH EYES
     Route: 047
     Dates: start: 20080422, end: 20090407
  3. MIKELAN LA 2% [Suspect]
     Active Substance: CARTEOLOL HYDROCHLORIDE
     Dosage: UNK
  4. KARY UNI [Concomitant]
     Active Substance: PIRENOXINE
  5. BENET [Concomitant]
     Active Substance: RISEDRONATE SODIUM

REACTIONS (1)
  - Cerebral infarction [Recovered/Resolved]

NARRATIVE: CASE EVENT DATE: 20081125
